FAERS Safety Report 9398604 (Version 1)
Quarter: 2013Q3

REPORT INFORMATION
  Report Type: Spontaneous
  Country: US (occurrence: US)
  Receive Date: 20130712
  Receipt Date: 20130712
  Transmission Date: 20140515
  Serious: Yes (Other)
  Sender: FDA-Public Use
  Company Number: US-JNJFOC-20130704619

PATIENT
  Age: 85 Year
  Sex: Female
  Weight: 49.9 kg

DRUGS (8)
  1. INVOKANA [Suspect]
     Indication: TYPE 2 DIABETES MELLITUS
     Route: 048
     Dates: start: 20130702, end: 20130705
  2. LISINOPRIL [Concomitant]
     Indication: HYPERTENSION
  3. SYNTHROID [Concomitant]
     Indication: HYPOTHYROIDISM
  4. MIRAPEX [Concomitant]
     Indication: RESTLESS LEGS SYNDROME
  5. CILOSTAZOL [Concomitant]
     Indication: PERIPHERAL VASCULAR DISORDER
  6. CALTRATE [Concomitant]
     Indication: BLOOD CALCIUM
  7. VITAMINS NOS [Concomitant]
  8. NEXIUM [Concomitant]
     Indication: GASTROOESOPHAGEAL REFLUX DISEASE

REACTIONS (5)
  - Platelet count decreased [Not Recovered/Not Resolved]
  - Haemoconcentration [Not Recovered/Not Resolved]
  - Ketosis [Not Recovered/Not Resolved]
  - Orgasm abnormal [Not Recovered/Not Resolved]
  - Dehydration [Not Recovered/Not Resolved]
